FAERS Safety Report 10556180 (Version 1)
Quarter: 2014Q4

REPORT INFORMATION
  Report Type: Spontaneous
  Country: FR (occurrence: FR)
  Receive Date: 20141031
  Receipt Date: 20141031
  Transmission Date: 20150529
  Serious: Yes (Hospitalization)
  Sender: FDA-Public Use
  Company Number: FR-009507513-1410FRA015563

PATIENT
  Age: 26 Year
  Sex: Female

DRUGS (3)
  1. OVITRELLE [Suspect]
     Active Substance: CHORIOGONADOTROPIN ALFA
     Dosage: 1 DF, UNK
     Dates: start: 20140329
  2. ORGALUTRAN [Suspect]
     Active Substance: GANIRELIX ACETATE
     Dosage: 1 DF, QD
     Route: 058
     Dates: start: 20140324, end: 20140328
  3. FOSTIMON [Suspect]
     Active Substance: UROFOLLITROPIN
     Dosage: 1 DF, QD, 150 IU/ML
     Route: 058
     Dates: start: 20140319, end: 20140328

REACTIONS (2)
  - Ascites [Recovered/Resolved]
  - Ovarian hyperstimulation syndrome [Recovered/Resolved]

NARRATIVE: CASE EVENT DATE: 20140411
